FAERS Safety Report 9748594 (Version 1)
Quarter: 2013Q4

REPORT INFORMATION
  Report Type: Spontaneous
  Country: GB (occurrence: None)
  Receive Date: 20131209
  Receipt Date: 20131209
  Transmission Date: 20140711
  Serious: Yes (Life-Threatening)
  Sender: FDA-Public Use
  Company Number: GB2013K4768SPO

PATIENT
  Age: 78 Year
  Sex: Female

DRUGS (6)
  1. LANSOPRAZOLE (LANSOPRAZOLE) [Suspect]
     Indication: PAIN
     Route: 048
     Dates: start: 20131016, end: 20131020
  2. IBUPROFEN [Suspect]
     Indication: PAIN
     Route: 048
     Dates: start: 20131016, end: 20131020
  3. CODEINE [Suspect]
     Indication: PAIN
     Route: 048
     Dates: start: 20131014, end: 20131018
  4. FUROSEMIDE (FRUSEMIDE) [Concomitant]
  5. PARACETAMOL (PARACETAMOL) [Concomitant]
  6. SINEMET (CARBIDOPA, CARBIDOPA MONOHYDRATE, LEVODOPA) [Concomitant]

REACTIONS (1)
  - Dermatitis exfoliative [None]
